FAERS Safety Report 6271307-0 (Version None)
Quarter: 2009Q3

REPORT INFORMATION
  Report Type: 
  Country: None (occurrence: None)
  Receive Date: 20090717
  Receipt Date: 20090708
  Transmission Date: 20100115
  Serious: Yes (Hospitalization, Other)
  Sender: FDA-Public Use
  Company Number: FR-BAYER-200925293GPV

PATIENT
  Age: 90 Year
  Sex: Female

DRUGS (9)
  1. IZILOX [Suspect]
     Indication: BRONCHITIS
     Dosage: TOTAL DAILY DOSE: 400 MG  UNIT DOSE: 400 MG
     Route: 048
     Dates: end: 20081102
  2. PLAVIX [Concomitant]
  3. LEVOTHYROX [Concomitant]
  4. AMLOR [Concomitant]
  5. OMEPRAZOLE [Concomitant]
  6. COAPROVEL [Concomitant]
  7. SOLUPRED [Concomitant]
     Route: 048
  8. GALANTAMINE HYDROBROMIDE [Concomitant]
  9. SERESTA [Concomitant]

REACTIONS (4)
  - CONFUSIONAL STATE [None]
  - FALL [None]
  - HYPERGLYCAEMIA [None]
  - RENAL FAILURE [None]
